FAERS Safety Report 12779717 (Version 3)
Quarter: 2016Q4

REPORT INFORMATION
  Report Type: Spontaneous
  Country: US (occurrence: US)
  Receive Date: 20160926
  Receipt Date: 20161024
  Transmission Date: 20170207
  Serious: No
  Sender: FDA-Public Use
  Company Number: US-PFIZER INC-2016442491

PATIENT
  Age: 56 Year
  Sex: Male
  Weight: 58.97 kg

DRUGS (2)
  1. FLAGYL [Suspect]
     Active Substance: METRONIDAZOLE\METRONIDAZOLE HYDROCHLORIDE
     Indication: FUNCTIONAL GASTROINTESTINAL DISORDER
  2. FLAGYL [Suspect]
     Active Substance: METRONIDAZOLE\METRONIDAZOLE HYDROCHLORIDE
     Indication: GASTROINTESTINAL DISORDER
     Dosage: 500 MG, 3X/DAY (EVERY 8 HOURS)
     Dates: start: 20160905, end: 20160910

REACTIONS (5)
  - Thinking abnormal [Unknown]
  - Paraesthesia [Not Recovered/Not Resolved]
  - Feeling abnormal [Not Recovered/Not Resolved]
  - Anxiety [Not Recovered/Not Resolved]
  - Tension [Recovering/Resolving]

NARRATIVE: CASE EVENT DATE: 20160905
